FAERS Safety Report 10576583 (Version 3)
Quarter: 2014Q4

REPORT INFORMATION
  Report Type: Spontaneous
  Country: DK (occurrence: DK)
  Receive Date: 20141111
  Receipt Date: 20141124
  Transmission Date: 20150529
  Serious: Yes (Other)
  Sender: FDA-Public Use
  Company Number: DK-ABBVIE-14P-044-1306235-00

PATIENT
  Age: 62 Year
  Sex: Male

DRUGS (4)
  1. LEVETIRACETAM. [Concomitant]
     Active Substance: LEVETIRACETAM
     Indication: PRODUCT USED FOR UNKNOWN INDICATION
     Dates: start: 20140925
  2. DEPAKENE [Suspect]
     Active Substance: VALPROIC ACID
     Indication: EPILEPSY
     Dosage: 1500 MG IN AM AND 1500 IN EVENING
     Route: 048
  3. DEPAKENE [Suspect]
     Active Substance: VALPROIC ACID
     Dosage: 1500 MG IN AM AND 1000 MG IN EVENING
     Route: 048
  4. PARACETAMOL [Concomitant]
     Active Substance: ACETAMINOPHEN
     Indication: PRODUCT USED FOR UNKNOWN INDICATION
     Dates: end: 2014

REACTIONS (3)
  - Medication residue present [Unknown]
  - Generalised tonic-clonic seizure [Recovered/Resolved]
  - Drug level increased [Unknown]

NARRATIVE: CASE EVENT DATE: 2014
